FAERS Safety Report 23429663 (Version 13)
Quarter: 2024Q2

REPORT INFORMATION
  Report Type: Report from Study
  Country: BR (occurrence: BR)
  Receive Date: 20240122
  Receipt Date: 20240605
  Transmission Date: 20240716
  Serious: Yes (Death, Hospitalization, Other)
  Sender: FDA-Public Use
  Company Number: BR-AKCEA THERAPEUTICS, INC.-2024IS001141

PATIENT

DRUGS (7)
  1. TEGSEDI [Suspect]
     Active Substance: INOTERSEN SODIUM
     Indication: Hereditary neuropathic amyloidosis
     Dosage: 284 MILLIGRAM, QW
     Route: 058
     Dates: start: 20240215, end: 20240411
  2. TEGSEDI [Suspect]
     Active Substance: INOTERSEN SODIUM
     Dosage: 284 MILLIGRAM, QW
     Route: 058
     Dates: start: 20240201
  3. TEGSEDI [Suspect]
     Active Substance: INOTERSEN SODIUM
     Dosage: 284 MILLIGRAM, QW
     Route: 058
     Dates: start: 202303
  4. LOSARTAN [Concomitant]
     Active Substance: LOSARTAN
     Indication: Hypertension
     Dosage: 50 MILLIGRAM
     Route: 065
  5. HYDROCHLOROTHIAZIDE [Concomitant]
     Active Substance: HYDROCHLOROTHIAZIDE
     Indication: Hypertension
     Dosage: 25 MILLIGRAM
     Route: 065
  6. CEFTAZIDIME [Concomitant]
     Active Substance: CEFTAZIDIME
     Indication: Product used for unknown indication
     Route: 042
  7. TEICOPLANIN [Concomitant]
     Active Substance: TEICOPLANIN
     Indication: Product used for unknown indication
     Route: 042

REACTIONS (35)
  - Sepsis [Fatal]
  - Osteomyelitis [Not Recovered/Not Resolved]
  - Cardiac disorder [Recovering/Resolving]
  - Spinal pain [Not Recovered/Not Resolved]
  - Muscular weakness [Recovering/Resolving]
  - Myocardial infarction [Recovered/Resolved]
  - Pulmonary oedema [Unknown]
  - Pleural infection [Not Recovered/Not Resolved]
  - Swelling [Recovered/Resolved]
  - Disease progression [Unknown]
  - Eschar [Unknown]
  - Pleural effusion [Recovered/Resolved]
  - Renal failure [Unknown]
  - Urinary tract infection [Not Recovered/Not Resolved]
  - Central nervous system infection [Recovering/Resolving]
  - Pneumonia [Recovering/Resolving]
  - Decubitus ulcer [Recovering/Resolving]
  - Petechiae [Unknown]
  - Pericardial effusion [Unknown]
  - Cardiac failure [Unknown]
  - Loss of consciousness [Unknown]
  - Renal impairment [Unknown]
  - Clostridium difficile colitis [Not Recovered/Not Resolved]
  - Urinary tract infection [Recovered/Resolved]
  - Decreased immune responsiveness [Unknown]
  - Malaise [Recovering/Resolving]
  - Muscle atrophy [Unknown]
  - Blood pressure abnormal [Recovered/Resolved]
  - Weight decreased [Unknown]
  - Nausea [Recovering/Resolving]
  - Diarrhoea [Unknown]
  - Hepatic function abnormal [Unknown]
  - Polymerase chain reaction positive [Unknown]
  - Bedridden [Unknown]
  - Asthenia [Unknown]

NARRATIVE: CASE EVENT DATE: 20231101
